FAERS Safety Report 24754500 (Version 6)
Quarter: 2025Q1

REPORT INFORMATION
  Report Type: Spontaneous
  Country: US (occurrence: US)
  Receive Date: 20241219
  Receipt Date: 20250107
  Transmission Date: 20250408
  Serious: No
  Sender: PFIZER
  Company Number: US-PFIZER INC-PV202400164756

PATIENT
  Age: 34 Year
  Sex: Male
  Weight: 91 kg

DRUGS (6)
  1. BRAFTOVI [Suspect]
     Active Substance: ENCORAFENIB
     Indication: Malignant melanoma stage III
     Dosage: 450 MG, DAILY (TAKE WITH OR WITHOUT FOOD)
     Route: 048
     Dates: start: 20240704
  2. BRAFTOVI [Suspect]
     Active Substance: ENCORAFENIB
     Indication: Malignant melanoma stage IV
  3. BRAFTOVI [Suspect]
     Active Substance: ENCORAFENIB
     Indication: Malignant melanoma
  4. MEKTOVI [Suspect]
     Active Substance: BINIMETINIB
     Indication: Malignant melanoma stage III
     Dosage: 45 MG, 2X/DAY (TAKE WITH OR WITHOUT FOOD, 3 PILLS AND 3 PILLS ORALLY IN THE 4 PM)
     Route: 048
     Dates: start: 20240704
  5. MEKTOVI [Suspect]
     Active Substance: BINIMETINIB
     Indication: Malignant melanoma stage IV
  6. MEKTOVI [Suspect]
     Active Substance: BINIMETINIB
     Indication: Malignant melanoma

REACTIONS (11)
  - Red cell distribution width increased [Unknown]
  - Blood bilirubin increased [Unknown]
  - Blood uric acid increased [Unknown]
  - Blood phosphorus increased [Unknown]
  - Blood glucose increased [Unknown]
  - Diarrhoea [Recovering/Resolving]
  - Haemoglobin decreased [Unknown]
  - Blood alkaline phosphatase increased [Unknown]
  - Blood creatine phosphokinase decreased [Unknown]
  - Off label use [Unknown]
  - Product use issue [Unknown]

NARRATIVE: CASE EVENT DATE: 20240101
